FAERS Safety Report 6069946-5 (Version None)
Quarter: 2009Q1

REPORT INFORMATION
  Report Type: 
  Country: None (occurrence: None)
  Receive Date: 20090209
  Receipt Date: 20090109
  Transmission Date: 20090719
  Serious: No
  Sender: FDA-Public Use
  Company Number: US-BAYER-200910819NA

PATIENT
  Age: 26 Year
  Sex: Female
  Weight: 55 kg

DRUGS (2)
  1. OCELLA [Suspect]
     Indication: CONTRACEPTION
     Route: 048
     Dates: start: 20080501
  2. MULTI-VITAMINS [Concomitant]

REACTIONS (2)
  - ABNORMAL WITHDRAWAL BLEEDING [None]
  - VAGINAL DISCHARGE [None]
